FAERS Safety Report 25497661 (Version 1)
Quarter: 2025Q3

REPORT INFORMATION
  Report Type: Spontaneous
  Country: EU (occurrence: EU)
  Receive Date: 20250701
  Receipt Date: 20250701
  Transmission Date: 20251020
  Serious: Yes (Life-Threatening, Hospitalization, Other)
  Sender: HIKMA
  Company Number: None

PATIENT
  Age: 67 Year
  Sex: Male
  Weight: 54.5 kg

DRUGS (3)
  1. CISPLATIN [Suspect]
     Active Substance: CISPLATIN
     Indication: Anal squamous cell carcinoma
     Dosage: 66 MILLIGRAM, QOW
     Route: 042
     Dates: start: 20250214, end: 20250328
  2. DOCETAXEL [Suspect]
     Active Substance: DOCETAXEL
     Indication: Anal squamous cell carcinoma
     Dosage: 66 MILLIGRAM, QOW
     Route: 042
     Dates: start: 20250214, end: 20250328
  3. FLUOROURACIL [Suspect]
     Active Substance: FLUOROURACIL
     Indication: Anal squamous cell carcinoma
     Dosage: 3960 MILLIGRAM, QOW
     Route: 042
     Dates: start: 20250214, end: 20250328

REACTIONS (4)
  - Congenital aplasia [Recovered/Resolved]
  - Hypovolaemic shock [Recovered/Resolved]
  - Acute kidney injury [Recovered/Resolved]
  - Diarrhoea [Recovering/Resolving]

NARRATIVE: CASE EVENT DATE: 20250215
